FAERS Safety Report 14000750 (Version 2)
Quarter: 2017Q4

REPORT INFORMATION
  Report Type: Spontaneous
  Country: US (occurrence: US)
  Receive Date: 20170922
  Receipt Date: 20171009
  Transmission Date: 20180321
  Serious: Yes (Other)
  Sender: FDA-Public Use
  Company Number: US-009507513-1709USA009942

PATIENT
  Age: 63 Year
  Sex: Female

DRUGS (3)
  1. ZEPATIER [Suspect]
     Active Substance: ELBASVIR\GRAZOPREVIR
     Indication: HEPATITIS C
     Dosage: 1 TABLET (100/50MG) DAILY FOR 12 WEEKS
     Route: 048
     Dates: start: 20170714
  2. LAMOTRIGINE. [Concomitant]
     Active Substance: LAMOTRIGINE
     Indication: SEIZURE
     Dosage: 400 MG, ONCE DAILY
     Dates: end: 20170901
  3. LAMOTRIGINE. [Concomitant]
     Active Substance: LAMOTRIGINE
     Dosage: 500 MG, ONCE DAILY
     Dates: start: 20170901

REACTIONS (2)
  - Seizure [Not Recovered/Not Resolved]
  - Drug level decreased [Recovering/Resolving]

NARRATIVE: CASE EVENT DATE: 20170714
